FAERS Safety Report 21715817 (Version 1)
Quarter: 2022Q4

REPORT INFORMATION
  Report Type: Spontaneous
  Country: None (occurrence: CA)
  Receive Date: 20221212
  Receipt Date: 20221212
  Transmission Date: 20230112
  Serious: Yes (Other)
  Sender: FDA-Public Use
  Company Number: CA-B.Braun Medical Inc.-2135778

PATIENT
  Sex: Female

DRUGS (7)
  1. DEXTROSE [Suspect]
     Active Substance: DEXTROSE
  2. AMPICILLIN SODIUM [Suspect]
     Active Substance: AMPICILLIN SODIUM
  3. ATOSIBAN [Suspect]
     Active Substance: ATOSIBAN
  4. AZITHROMYCIN [Suspect]
     Active Substance: AZITHROMYCIN
  5. BETAMETHASONE [Suspect]
     Active Substance: BETAMETHASONE
  6. GENTAMICIN [Suspect]
     Active Substance: GENTAMICIN
  7. MAGNESIUM SULFATE [Suspect]
     Active Substance: MAGNESIUM SULFATE

REACTIONS (5)
  - Delivery [Unknown]
  - Maternal exposure during pregnancy [Unknown]
  - Normal labour [Unknown]
  - Premature delivery [Unknown]
  - Product use in unapproved indication [Unknown]
